FAERS Safety Report 20689298 (Version 1)
Quarter: 2022Q2

REPORT INFORMATION
  Report Type: Spontaneous
  Country: US (occurrence: None)
  Receive Date: 20220407
  Receipt Date: 20220407
  Transmission Date: 20220721
  Serious: No
  Sender: FDA-Public Use
  Company Number: None

PATIENT
  Sex: Female

DRUGS (7)
  1. AMBRISENTAN [Suspect]
     Active Substance: AMBRISENTAN
     Indication: Pulmonary hypertension
     Dosage: FREQUENCY : DAILY;?
     Route: 048
  2. ADCIRCA [Concomitant]
     Active Substance: TADALAFIL
  3. DIGOXIN [Concomitant]
     Active Substance: DIGOXIN
  4. LASIX [Concomitant]
     Active Substance: FUROSEMIDE
  5. TYVASO [Concomitant]
     Active Substance: TREPROSTINIL
  6. VERAPAMIL HYDROCHLORIDE [Concomitant]
     Active Substance: VERAPAMIL HYDROCHLORIDE
  7. TADALAFIL [Concomitant]
     Active Substance: TADALAFIL

REACTIONS (6)
  - Nausea [None]
  - Headache [None]
  - Diarrhoea [None]
  - Flushing [None]
  - Product substitution issue [None]
  - Therapy cessation [None]
